FAERS Safety Report 6736960-3 (Version None)
Quarter: 2010Q2

REPORT INFORMATION
  Report Type: 
  Country: None (occurrence: None)
  Receive Date: 20100523
  Receipt Date: 20100518
  Transmission Date: 20101027
  Serious: Yes (Other)
  Sender: FDA-Public Use
  Company Number: US-JNJFOC-20100502590

PATIENT
  Age: 10 Month
  Sex: Female
  Weight: 7.26 kg

DRUGS (4)
  1. CONCENTRATED MOTRIN INFANTS DYE-FREE [Suspect]
     Route: 048
  2. CONCENTRATED MOTRIN INFANTS DYE-FREE [Suspect]
     Indication: PYREXIA
     Route: 048
  3. CHILDREN'S MOTRIN [Suspect]
  4. CHILDREN'S MOTRIN [Suspect]
     Indication: PYREXIA

REACTIONS (3)
  - PRODUCT QUALITY ISSUE [None]
  - VOMITING [None]
  - WEIGHT DECREASED [None]
